FAERS Safety Report 25745764 (Version 1)
Quarter: 2025Q3

REPORT INFORMATION
  Report Type: Spontaneous
  Country: JP (occurrence: JP)
  Receive Date: 20250901
  Receipt Date: 20250901
  Transmission Date: 20251020
  Serious: Yes (Other)
  Sender: Unknown Manufacturer
  Company Number: JP-862174955-ML2025-04366

PATIENT
  Age: 65 Year
  Sex: Female

DRUGS (9)
  1. OLMESARTAN MEDOXOMIL [Suspect]
     Active Substance: OLMESARTAN MEDOXOMIL
     Indication: Hypertension
  2. VONOPRAZAN [Concomitant]
     Active Substance: VONOPRAZAN
     Indication: Duodenal ulcer
     Dosage: 2 YEARS PRIOR
  3. VONOPRAZAN [Concomitant]
     Active Substance: VONOPRAZAN
     Indication: Dyspepsia
  4. FAMOTIDINE [Concomitant]
     Active Substance: FAMOTIDINE
     Indication: Dyspepsia
  5. AZELNIDIPINE [Concomitant]
     Active Substance: AZELNIDIPINE
     Indication: Product used for unknown indication
  6. SIMVASTATIN [Concomitant]
     Active Substance: SIMVASTATIN
     Indication: Product used for unknown indication
  7. MIRABEGRON [Concomitant]
     Active Substance: MIRABEGRON
     Indication: Product used for unknown indication
  8. IMIDAFENACIN [Concomitant]
     Active Substance: IMIDAFENACIN
     Indication: Product used for unknown indication
  9. LOXOPROFEN [Concomitant]
     Active Substance: LOXOPROFEN
     Indication: Headache

REACTIONS (1)
  - Gastritis [Recovered/Resolved]
